FAERS Safety Report 13585890 (Version 5)
Quarter: 2021Q3

REPORT INFORMATION
  Report Type: Other
  Country: DE (occurrence: DE)
  Receive Date: 20170526
  Receipt Date: 20210824
  Transmission Date: 20211014
  Serious: Yes (Hospitalization)
  Sender: FDA-Public Use
  Company Number: DE-ROCHE-1938872

PATIENT
  Age: 71 Year
  Sex: Male

DRUGS (11)
  1. RIXATHON [Suspect]
     Active Substance: RITUXIMAB
     Indication: RHEUMATOID ARTHRITIS
     Route: 065
     Dates: start: 201802
  2. RIXATHON [Suspect]
     Active Substance: RITUXIMAB
     Route: 065
     Dates: start: 202004
  3. TOCILIZUMAB. [Suspect]
     Active Substance: TOCILIZUMAB
     Route: 065
     Dates: start: 201605, end: 201606
  4. RIXATHON [Suspect]
     Active Substance: RITUXIMAB
     Route: 065
     Dates: start: 201903
  5. RIXATHON [Suspect]
     Active Substance: RITUXIMAB
     Route: 065
     Dates: start: 201809
  6. TOCILIZUMAB. [Suspect]
     Active Substance: TOCILIZUMAB
     Indication: RHEUMATOID ARTHRITIS
     Route: 065
     Dates: start: 201608, end: 201611
  7. METHOTREXATE. [Suspect]
     Active Substance: METHOTREXATE
     Indication: RHEUMATOID ARTHRITIS
     Route: 065
  8. RITUXIMAB. [Suspect]
     Active Substance: RITUXIMAB
     Indication: RHEUMATOID ARTHRITIS
     Route: 065
     Dates: start: 201702
  9. RUXIENCE [Suspect]
     Active Substance: RITUXIMAB-PVVR
     Indication: RHEUMATOID ARTHRITIS
     Route: 065
     Dates: start: 202010
  10. TRUXIMA [Concomitant]
     Active Substance: RITUXIMAB-ABBS
     Dates: start: 201708
  11. RITUXIMAB. [Suspect]
     Active Substance: RITUXIMAB
     Route: 065
     Dates: start: 201909

REACTIONS (6)
  - Rheumatoid arthritis [Recovered/Resolved]
  - Influenza like illness [Recovered/Resolved]
  - Bronchitis chronic [Unknown]
  - Rheumatoid arthritis [Recovered/Resolved]
  - Hepatic steatosis [Unknown]
  - Hepatomegaly [Unknown]

NARRATIVE: CASE EVENT DATE: 20161115
